FAERS Safety Report 14323655 (Version 10)
Quarter: 2018Q4

REPORT INFORMATION
  Report Type: Report from Study
  Country: CA (occurrence: CA)
  Receive Date: 20171226
  Receipt Date: 20181109
  Transmission Date: 20190204
  Serious: Yes (Other)
  Sender: FDA-Public Use
  Company Number: CA-ROCHE-2027100

PATIENT
  Age: 70 Year
  Sex: Male

DRUGS (11)
  1. ESBRIET [Suspect]
     Active Substance: PIRFENIDONE
     Route: 048
     Dates: start: 201711
  2. ESBRIET [Suspect]
     Active Substance: PIRFENIDONE
     Route: 048
  3. TRAMACET [Concomitant]
     Active Substance: ACETAMINOPHEN\TRAMADOL
  4. ESBRIET [Suspect]
     Active Substance: PIRFENIDONE
     Route: 048
     Dates: start: 20171115
  5. TRAMADOL. [Concomitant]
     Active Substance: TRAMADOL
  6. VENTOLIN [Concomitant]
     Active Substance: ALBUTEROL SULFATE
  7. PREDNISONE. [Concomitant]
     Active Substance: PREDNISONE
  8. ESBRIET [Suspect]
     Active Substance: PIRFENIDONE
     Indication: IDIOPATHIC PULMONARY FIBROSIS
     Route: 048
     Dates: start: 20171030
  9. FLOVENT [Concomitant]
     Active Substance: FLUTICASONE PROPIONATE
  10. PANTOPRAZOLE [Concomitant]
     Active Substance: PANTOPRAZOLE
  11. AMITRIPTYLINE [Concomitant]
     Active Substance: AMITRIPTYLINE

REACTIONS (20)
  - Chest pain [Unknown]
  - Cough [Unknown]
  - Weight decreased [Unknown]
  - Heart rate increased [Unknown]
  - Pulmonary pain [Unknown]
  - Osteitis [Unknown]
  - Pain [Not Recovered/Not Resolved]
  - Arthritis [Unknown]
  - Productive cough [Unknown]
  - Fatigue [Unknown]
  - Musculoskeletal stiffness [Recovering/Resolving]
  - Abdominal discomfort [Not Recovered/Not Resolved]
  - Lung disorder [Unknown]
  - Dyspnoea [Not Recovered/Not Resolved]
  - Malaise [Unknown]
  - Malaise [Not Recovered/Not Resolved]
  - Stress [Unknown]
  - Chest discomfort [Unknown]
  - Myalgia [Unknown]
  - Abdominal discomfort [Not Recovered/Not Resolved]

NARRATIVE: CASE EVENT DATE: 2018
